FAERS Safety Report 7845949-2 (Version None)
Quarter: 2011Q4

REPORT INFORMATION
  Report Type: 
  Country: None (occurrence: None)
  Receive Date: 20111025
  Receipt Date: 20111010
  Transmission Date: 20120403
  Serious: Yes (Other)
  Sender: FDA-Public Use
  Company Number: GB-WATSON-2011-17307

PATIENT
  Age: 42 Year
  Sex: Female

DRUGS (2)
  1. LAMOTRIGINE [Suspect]
     Dosage: 25 TO 50 MG DAILY
  2. LAMOTRIGINE [Suspect]
     Indication: BIPOLAR DISORDER
     Dosage: 100 MG DAILY

REACTIONS (6)
  - ABNORMAL DREAMS [None]
  - SLEEP DISORDER [None]
  - HALLUCINATION, VISUAL [None]
  - NIGHTMARE [None]
  - HEADACHE [None]
  - HYPERACUSIS [None]
